FAERS Safety Report 15957917 (Version 2)
Quarter: 2019Q1

REPORT INFORMATION
  Report Type: Report from Study
  Country: AR (occurrence: AR)
  Receive Date: 20190213
  Receipt Date: 20190227
  Transmission Date: 20190417
  Serious: Yes (Hospitalization, Other)
  Sender: FDA-Public Use
  Company Number: PHHY2019AR033895

PATIENT
  Age: 78 Year
  Sex: Female

DRUGS (2)
  1. ENTRESTO [Suspect]
     Active Substance: SACUBITRIL\VALSARTAN
     Indication: CARDIAC FAILURE
     Dosage: 1.5 DF (100MG), (HALF IN MORNING AND ONE AT NIGHT)
     Route: 065
  2. LASIX [Concomitant]
     Active Substance: FUROSEMIDE
     Indication: PRODUCT USED FOR UNKNOWN INDICATION
     Dosage: 40 MG, (AT LUNCH)
     Route: 065

REACTIONS (9)
  - Cardiac disorder [Recovered/Resolved]
  - Dizziness [Recovered/Resolved]
  - Loss of consciousness [Unknown]
  - Orthopnoea [Unknown]
  - Arrhythmia [Not Recovered/Not Resolved]
  - Feeling abnormal [Unknown]
  - Cardiomegaly [Unknown]
  - Dyspnoea [Recovered/Resolved]
  - Wrong technique in product usage process [Unknown]

NARRATIVE: CASE EVENT DATE: 201804
